FAERS Safety Report 6517038-0 (Version None)
Quarter: 2009Q4

REPORT INFORMATION
  Report Type: 
  Country: None (occurrence: None)
  Receive Date: 20091223
  Receipt Date: 20091214
  Transmission Date: 20100525
  Serious: Yes (Hospitalization)
  Sender: FDA-Public Use
  Company Number: RU-NOVOPROD-302190

PATIENT
  Age: 59 Year
  Sex: Male
  Weight: 82 kg

DRUGS (4)
  1. LEVEMIR [Suspect]
     Indication: TYPE 2 DIABETES MELLITUS
     Dosage: 10 IU, SINGLE
     Route: 058
     Dates: start: 20091030, end: 20091030
  2. GLIBOMET [Concomitant]
     Indication: DIABETES MELLITUS
     Dosage: 4 TAB, QD
     Route: 048
     Dates: end: 20091102
  3. ACTRAPID HM [Concomitant]
     Indication: TYPE 2 DIABETES MELLITUS
  4. PROTAPHANE HM [Concomitant]
     Indication: TYPE 2 DIABETES MELLITUS

REACTIONS (2)
  - INJECTION SITE REACTION [None]
  - MYOCARDIAL INFARCTION [None]
